FAERS Safety Report 8174766-1 (Version None)
Quarter: 2012Q1

REPORT INFORMATION
  Report Type: 
  Country: None (occurrence: None)
  Receive Date: 20120229
  Receipt Date: 20120215
  Transmission Date: 20120608
  Serious: Yes (Congenital Anomaly)
  Sender: FDA-Public Use
  Company Number: PHHY2012FR014028

PATIENT

DRUGS (1)
  1. RASILEZ HCT [Suspect]
     Indication: HYPERTENSION
     Dosage: 300/12.5 MG
     Route: 064

REACTIONS (5)
  - TRISOMY 13 [None]
  - FOETAL MALFORMATION [None]
  - ECTOPIA CORDIS [None]
  - TRISOMY 18 [None]
  - MATERNAL DRUGS AFFECTING FOETUS [None]
